FAERS Safety Report 6775085-8 (Version None)
Quarter: 2010Q2

REPORT INFORMATION
  Report Type: 
  Country: None (occurrence: None)
  Receive Date: 20100617
  Receipt Date: 20100610
  Transmission Date: 20101027
  Serious: Yes (Hospitalization)
  Sender: FDA-Public Use
  Company Number: B0659941A

PATIENT
  Age: 43 Year
  Sex: Female

DRUGS (3)
  1. AUGMENTIN '125' [Suspect]
     Indication: LUNG DISORDER
     Route: 042
     Dates: start: 20100329, end: 20100404
  2. MEPRONIZINE [Suspect]
     Indication: SUICIDE ATTEMPT
     Dosage: 150TAB PER DAY
     Route: 048
     Dates: start: 20100328, end: 20100328
  3. SOLIAN [Concomitant]
     Indication: SUICIDE ATTEMPT
     Route: 048
     Dates: start: 20100328

REACTIONS (7)
  - HEPATIC STEATOSIS [None]
  - HYPERTRIGLYCERIDAEMIA [None]
  - LIVER DISORDER [None]
  - PANCREATIC DISORDER [None]
  - PANCREATITIS ACUTE [None]
  - SUICIDE ATTEMPT [None]
  - TRANSAMINASES INCREASED [None]
